FAERS Safety Report 7814898-8 (Version None)
Quarter: 2011Q4

REPORT INFORMATION
  Report Type: 
  Country: None (occurrence: None)
  Receive Date: 20111013
  Receipt Date: 20111013
  Transmission Date: 20120403
  Serious: Yes (Hospitalization)
  Sender: FDA-Public Use
  Company Number: None

PATIENT
  Sex: Male
  Weight: 99.7913 kg

DRUGS (1)
  1. EFFIENT [Suspect]
     Indication: STENT PLACEMENT
     Dosage: 1 DAILY AUG 3RD ALMOST 2 WKS OF USE

REACTIONS (8)
  - INCREASED TENDENCY TO BRUISE [None]
  - MOBILITY DECREASED [None]
  - SOMNOLENCE [None]
  - DYSPNOEA [None]
  - SKIN DISCOLOURATION [None]
  - HEADACHE [None]
  - UNEVALUABLE EVENT [None]
  - ASTHENIA [None]
